FAERS Safety Report 22597637 (Version 1)
Quarter: 2023Q2

REPORT INFORMATION
  Report Type: Spontaneous
  Country: CA (occurrence: None)
  Receive Date: 20230614
  Receipt Date: 20230614
  Transmission Date: 20230721
  Serious: No
  Sender: FDA-Public Use
  Company Number: CA-ROCHE-3367833

PATIENT
  Age: 33 Year
  Sex: Female

DRUGS (1)
  1. OCREVUS [Suspect]
     Active Substance: OCRELIZUMAB
     Indication: Multiple sclerosis
     Dosage: ONGOING-EVERY 6 MONTHS
     Route: 042
     Dates: start: 20100125

REACTIONS (1)
  - Herpes virus infection [Recovered/Resolved]

NARRATIVE: CASE EVENT DATE: 20221126
